FAERS Safety Report 9107761 (Version 5)
Quarter: 2013Q3

REPORT INFORMATION
  Report Type: Spontaneous
  Country: NZ (occurrence: NZ)
  Receive Date: 20130221
  Receipt Date: 20130705
  Transmission Date: 20140515
  Serious: Yes (Disabling)
  Sender: FDA-Public Use
  Company Number: NZ-ROCHE-1192911

PATIENT
  Age: 29 Year
  Sex: Female

DRUGS (6)
  1. ACTEMRA [Suspect]
     Indication: RHEUMATOID ARTHRITIS
     Route: 058
     Dates: start: 20130209
  2. ACTEMRA [Suspect]
     Indication: JUVENILE IDIOPATHIC ARTHRITIS
     Route: 042
     Dates: start: 20111018, end: 20111114
  3. ACTEMRA [Suspect]
     Route: 042
     Dates: end: 20130217
  4. METHOTREXATE [Concomitant]
     Route: 058
  5. FOLIC ACID [Concomitant]
     Route: 048
  6. OMEPRAZOLE [Concomitant]
     Indication: GASTROINTESTINAL HAEMORRHAGE
     Route: 048

REACTIONS (1)
  - Peripheral ischaemia [Unknown]
